FAERS Safety Report 18987700 (Version 1)
Quarter: 2021Q1

REPORT INFORMATION
  Report Type: Report from Study
  Country: DE (occurrence: DE)
  Receive Date: 20210309
  Receipt Date: 20210309
  Transmission Date: 20210420
  Serious: Yes (Other)
  Sender: FDA-Public Use
  Company Number: DE-TAKEDA-2021TUS014905

PATIENT
  Sex: Female

DRUGS (1)
  1. 643 (LANADELUMAB) [Suspect]
     Active Substance: LANADELUMAB
     Indication: PRODUCT USED FOR UNKNOWN INDICATION
     Dosage: UNK
     Route: 065

REACTIONS (2)
  - Injection site erythema [Unknown]
  - Intra-abdominal haematoma [Unknown]

NARRATIVE: CASE EVENT DATE: 20200315
